FAERS Safety Report 4293506-X (Version None)
Quarter: 2004Q1

REPORT INFORMATION
  Report Type: 
  Country: None (occurrence: None)
  Receive Date: 20040210
  Receipt Date: 20040126
  Transmission Date: 20041129
  Serious: Yes (Hospitalization)
  Sender: FDA-Public Use
  Company Number: 2004AP00442

PATIENT
  Age: 60 Year
  Sex: Male
  Weight: 55 kg

DRUGS (7)
  1. CRESTOR [Suspect]
     Indication: HYPERCHOLESTEROLAEMIA
     Dosage: 10 MG DAILY PO
     Route: 048
     Dates: start: 20031116, end: 20031212
  2. ISOPTIN TAB [Suspect]
     Indication: HYPERTENSION
     Dosage: 240 MG DAILY PO
     Route: 048
     Dates: start: 20031101
  3. KETOSTERIL [Concomitant]
  4. LLANOL [Concomitant]
  5. ALU-TAB [Concomitant]
  6. ADALAT [Concomitant]
  7. COLCHICINE [Concomitant]

REACTIONS (12)
  - ABASIA [None]
  - DECREASED APPETITE [None]
  - DRUG INTERACTION [None]
  - HEPATITIS [None]
  - MALAISE [None]
  - MYALGIA [None]
  - MYOPATHY [None]
  - PARALYSIS [None]
  - RENAL IMPAIRMENT [None]
  - RHABDOMYOLYSIS [None]
  - URINE OUTPUT DECREASED [None]
  - VOMITING [None]
